FAERS Safety Report 14985679 (Version 1)
Quarter: 2018Q2

REPORT INFORMATION
  Report Type: Spontaneous
  Country: CA (occurrence: CA)
  Receive Date: 20180607
  Receipt Date: 20180607
  Transmission Date: 20180711
  Serious: Yes (Death)
  Sender: FDA-Public Use
  Company Number: CA-TEVA-2018-CA-900794

PATIENT
  Age: 15 Year
  Sex: Female
  Weight: 66 kg

DRUGS (3)
  1. AMITRIPTYLINE [Suspect]
     Active Substance: AMITRIPTYLINE
     Route: 065
  2. METOPROLOL. [Suspect]
     Active Substance: METOPROLOL
     Route: 065
  3. MIRENA [Concomitant]
     Active Substance: LEVONORGESTREL

REACTIONS (4)
  - Overdose [Fatal]
  - Antidepressant drug level increased [Fatal]
  - Toxicologic test abnormal [Fatal]
  - Postmortem blood drug level increased [Fatal]
